FAERS Safety Report 5710238-9 (Version None)
Quarter: 2008Q2

REPORT INFORMATION
  Report Type: 
  Country: None (occurrence: None)
  Receive Date: 20080418
  Receipt Date: 20080408
  Transmission Date: 20081010
  Serious: Yes (Death, Life-Threatening)
  Sender: FDA-Public Use
  Company Number: FR-PFIZER INC-2008014077

PATIENT
  Sex: Female

DRUGS (10)
  1. LYRICA [Suspect]
     Indication: PAIN
     Route: 048
     Dates: start: 20080205, end: 20080210
  2. LYRICA [Suspect]
     Indication: NEURALGIA
  3. SKENAN [Suspect]
  4. ACTISKENAN [Suspect]
     Indication: PAIN
     Route: 048
  5. NEXIUM [Concomitant]
     Route: 042
  6. LASILIX [Concomitant]
     Route: 048
  7. LEVOTHYROXINE SODIUM [Concomitant]
     Indication: HYPOTHYROIDISM
     Route: 048
  8. PRIMPERAN INJ [Concomitant]
     Indication: NAUSEA
     Route: 048
  9. LACTULOSE [Concomitant]
     Indication: CONSTIPATION
     Route: 048
  10. LEVOFLOXACIN [Concomitant]
     Indication: LUNG INFECTION
     Route: 048
     Dates: start: 20080201, end: 20080210

REACTIONS (5)
  - CEREBRAL ISCHAEMIA [None]
  - COMA [None]
  - DECEREBRATION [None]
  - METABOLIC ACIDOSIS [None]
  - RENAL FAILURE [None]
